FAERS Safety Report 13592673 (Version 2)
Quarter: 2018Q3

REPORT INFORMATION
  Report Type: Report from Study
  Country: DE (occurrence: DE)
  Receive Date: 20170530
  Receipt Date: 20180802
  Transmission Date: 20181010
  Serious: Yes (Other)
  Sender: FDA-Public Use
  Company Number: PHHY2017DE077110

PATIENT
  Age: 53 Year
  Sex: Male
  Weight: 92 kg

DRUGS (18)
  1. COSENTYX [Suspect]
     Active Substance: SECUKINUMAB
     Dosage: 300 MG, UNK (PER APPLICATION)
     Route: 065
     Dates: start: 20161029
  2. COSENTYX [Suspect]
     Active Substance: SECUKINUMAB
     Dosage: 300 MG, UNK (PER APPLICATION)
     Route: 065
     Dates: start: 20160709
  3. COSENTYX [Suspect]
     Active Substance: SECUKINUMAB
     Dosage: 300 MG, UNK (PER APPLICATION)
     Route: 065
     Dates: start: 20161126
  4. COSENTYX [Suspect]
     Active Substance: SECUKINUMAB
     Dosage: 300 MG, UNK (PER APPLICATION)
     Route: 065
     Dates: start: 20160318
  5. VOLTAREN [Concomitant]
     Active Substance: DICLOFENAC SODIUM
     Indication: PSORIATIC ARTHROPATHY
     Dosage: 1 DF, PRN
     Route: 048
     Dates: start: 20160415
  6. COSENTYX [Suspect]
     Active Substance: SECUKINUMAB
     Indication: PSORIATIC ARTHROPATHY
     Dosage: 300 MG, UNK (PER APPLICATION)
     Route: 065
     Dates: start: 20160304
  7. COSENTYX [Suspect]
     Active Substance: SECUKINUMAB
     Dosage: 300 MG, UNK (PER APPLICATION)
     Route: 065
     Dates: start: 20160409
  8. COSENTYX [Suspect]
     Active Substance: SECUKINUMAB
     Dosage: 300 MG, UNK (PER APPLICATION)
     Route: 065
     Dates: start: 20160218
  9. COSENTYX [Suspect]
     Active Substance: SECUKINUMAB
     Dosage: 300 MG, UNK (PER APPLICATION)
     Route: 065
     Dates: start: 20160326
  10. COSENTYX [Suspect]
     Active Substance: SECUKINUMAB
     Dosage: 300 MG, UNK (PER APPLICATION)
     Route: 065
     Dates: start: 20160402
  11. COSENTYX [Suspect]
     Active Substance: SECUKINUMAB
     Dosage: 300 MG, UNK (PER APPLICATION)
     Route: 065
     Dates: start: 20160903
  12. COSENTYX [Suspect]
     Active Substance: SECUKINUMAB
     Dosage: 300 MG, UNK (PER APPLICATION)
     Route: 065
     Dates: start: 20161001
  13. COSENTYX [Suspect]
     Active Substance: SECUKINUMAB
     Dosage: 300 MG, UNK (PER APPLICATION)
     Route: 065
     Dates: start: 20160121
  14. COSENTYX [Suspect]
     Active Substance: SECUKINUMAB
     Dosage: 300 MG, UNK (PER APPLICATION)
     Route: 065
     Dates: start: 20160319
  15. COSENTYX [Suspect]
     Active Substance: SECUKINUMAB
     Dosage: 300 MG, UNK (PER APPLICATION)
     Route: 065
     Dates: start: 20160514
  16. COSENTYX [Suspect]
     Active Substance: SECUKINUMAB
     Dosage: 300 MG, UNK (PER APPLICATION)
     Route: 065
     Dates: start: 20160611
  17. COSENTYX [Suspect]
     Active Substance: SECUKINUMAB
     Dosage: 300 MG, UNK (PER APPLICATION)
     Route: 065
     Dates: start: 20161224
  18. COSENTYX [Suspect]
     Active Substance: SECUKINUMAB
     Dosage: 300 MG, UNK (PER APPLICATION)
     Route: 065
     Dates: start: 20160806

REACTIONS (2)
  - Inappropriate schedule of drug administration [Unknown]
  - Oesophageal candidiasis [Unknown]

NARRATIVE: CASE EVENT DATE: 201703
